FAERS Safety Report 9463577 (Version 1)
Quarter: 2013Q3

REPORT INFORMATION
  Report Type: Spontaneous
  Country: BR (occurrence: BR)
  Receive Date: 20130819
  Receipt Date: 20130819
  Transmission Date: 20140515
  Serious: Yes (Other)
  Sender: FDA-Public Use
  Company Number: BR-ACCORD-018917

PATIENT
  Age: 45 Year
  Sex: Female
  Weight: 68 kg

DRUGS (8)
  1. GEMCITABINE [Suspect]
     Indication: CHEMOTHERAPY
     Route: 042
     Dates: start: 201301, end: 20130405
  2. ONDANSETRON [Concomitant]
     Route: 042
     Dates: start: 20130125, end: 20130405
  3. ENOXAPARIN [Concomitant]
     Route: 048
     Dates: start: 20130122, end: 20130406
  4. DEXAMETHASONE [Concomitant]
     Route: 042
     Dates: start: 20130125, end: 20130405
  5. ONDANSETRON [Concomitant]
     Route: 048
     Dates: start: 20130125, end: 20130405
  6. OMEPRAZOL [Concomitant]
     Route: 048
     Dates: start: 20130122, end: 20130406
  7. DIPYRONE [Concomitant]
     Route: 048
     Dates: start: 20130122, end: 20130406
  8. METOCLOPRAMIDE [Concomitant]
     Route: 048
     Dates: start: 20130122, end: 20130406

REACTIONS (3)
  - Chest pain [Recovered/Resolved]
  - Tachycardia [Recovered/Resolved]
  - Dyspnoea [Recovered/Resolved]
